FAERS Safety Report 12504010 (Version 1)
Quarter: 2016Q2

REPORT INFORMATION
  Report Type: Spontaneous
  Country: GB (occurrence: GB)
  Receive Date: 20160628
  Receipt Date: 20160628
  Transmission Date: 20160815
  Serious: Yes (Disabling, Other)
  Sender: FDA-Public Use
  Company Number: GB-TORRENT-00006946

PATIENT
  Age: 61 Year
  Sex: Male

DRUGS (3)
  1. TORRENT PHARMA DONEPEZIL [Suspect]
     Active Substance: DONEPEZIL
     Indication: DEMENTIA
     Dosage: AT NIGHT
     Route: 048
     Dates: end: 20160608
  2. FULTIUM-D3 [Concomitant]
     Indication: PRODUCT USED FOR UNKNOWN INDICATION
  3. WINTHROP PHARMS UK DONEPEZIL [Concomitant]
     Indication: DEMENTIA
     Dosage: WITHDRAWN
     Dates: start: 201209

REACTIONS (2)
  - Product substitution issue [Unknown]
  - Partial seizures [Recovering/Resolving]
